FAERS Safety Report 5639028-2 (Version None)
Quarter: 2008Q1

REPORT INFORMATION
  Report Type: 
  Country: None (occurrence: None)
  Receive Date: 20080226
  Receipt Date: 20080220
  Transmission Date: 20080703
  Serious: Yes (Hospitalization)
  Sender: FDA-Public Use
  Company Number: US-BRISTOL-MYERS SQUIBB COMPANY-14083844

PATIENT
  Age: 62 Year
  Sex: Male
  Weight: 103 kg

DRUGS (3)
  1. CETUXIMAB [Suspect]
     Indication: SQUAMOUS CELL CARCINOMA
     Dosage: COURSE START DATE -22JAN08;WEEKLY X 7 WEEKS
     Dates: start: 20080122
  2. CISPLATIN [Suspect]
     Indication: SQUAMOUS CELL CARCINOMA
     Dosage: COURSE START DATE-22JAN08(DAYS 1 AND 22)
     Dates: start: 20080122
  3. RADIATION THERAPY [Suspect]

REACTIONS (1)
  - PNEUMONIA [None]
